FAERS Safety Report 4284393-4 (Version None)
Quarter: 2004Q1

REPORT INFORMATION
  Report Type: 
  Country: None (occurrence: None)
  Receive Date: 20040203
  Receipt Date: 20040129
  Transmission Date: 20041129
  Serious: Yes (Death)
  Sender: FDA-Public Use
  Company Number: PHNR2004AU00516

PATIENT
  Age: 62 Year
  Sex: Male

DRUGS (11)
  1. VOLTAREN [Suspect]
     Indication: ACUTE MYOCARDIAL INFARCTION
  2. RAPILYSIN ^ROCHE^ [Suspect]
     Dosage: 10 UNK, BID
     Dates: start: 20030822
  3. HEPARIN CALCIUM [Suspect]
     Indication: ACUTE MYOCARDIAL INFARCTION
     Dates: start: 20030822
  4. ASPIRIN [Suspect]
     Dosage: 150 MG, QD
     Route: 048
     Dates: start: 20030822
  5. KARVEA [Concomitant]
  6. RHINOCORT [Concomitant]
  7. ATENOLOL [Concomitant]
  8. GLYCERYL TRINITRATE [Concomitant]
  9. MORPHINE [Concomitant]
  10. MAXOLON [Concomitant]
  11. METOPROLOL [Concomitant]

REACTIONS (1)
  - HAEMORRHAGE [None]
